FAERS Safety Report 6222702-7 (Version None)
Quarter: 2009Q2

REPORT INFORMATION
  Report Type: 
  Country: None (occurrence: None)
  Receive Date: 20090611
  Receipt Date: 20090604
  Transmission Date: 20091009
  Serious: Yes (Death)
  Sender: FDA-Public Use
  Company Number: US-BAYER-200911807NA

PATIENT
  Age: 52 Year
  Sex: Female

DRUGS (1)
  1. NEXAVAR [Suspect]
     Indication: THYROID CANCER
     Route: 048
     Dates: start: 20090120

REACTIONS (1)
  - DEATH [None]
